FAERS Safety Report 9695657 (Version 1)
Quarter: 2013Q4

REPORT INFORMATION
  Report Type: Spontaneous
  Country: GB (occurrence: GB)
  Receive Date: 20131119
  Receipt Date: 20131119
  Transmission Date: 20140711
  Serious: Yes (Hospitalization, Other)
  Sender: FDA-Public Use
  Company Number: GB-PFIZER INC-2013324861

PATIENT
  Age: 38 Year
  Sex: Female
  Weight: 68 kg

DRUGS (12)
  1. EPIRUBICIN HCL [Suspect]
     Indication: BREAST CANCER
     Dosage: 190 MG (LAST DOSE PRIOR TO SAE: 25JUN2013)
     Route: 042
     Dates: start: 20130514, end: 20130625
  2. FLUOROURACIL [Suspect]
     Indication: BREAST CANCER
     Dosage: 900 MG (LAST DOSE PRIOR TO SAE: 25/JUN/2013)
     Route: 042
     Dates: start: 20130514, end: 20130625
  3. DOCETAXEL [Suspect]
     Indication: BREAST CANCER
     Dosage: 190 MG, EVERY 3 WEEKS
     Route: 042
     Dates: start: 20130716
  4. CYCLOPHOSPHAMIDE [Suspect]
     Indication: BREAST CANCER
     Dosage: 900 MG (LAST DOSE PRIOR TO SAE: 25JUN2013)
     Route: 042
     Dates: start: 20130514, end: 20130625
  5. HERCEPTIN [Suspect]
     Indication: BREAST CANCER
     Dosage: 546 MG, EVERY 3 WEEKS
     Route: 042
     Dates: start: 20130716
  6. ONDANSETRON [Concomitant]
     Dosage: UNK
     Dates: start: 20130514
  7. DOMPERIDONE [Concomitant]
     Dosage: UNK
     Dates: start: 20130514
  8. DOMPERIDONE [Concomitant]
     Dates: start: 20130715
  9. DEXAMETHASONE [Concomitant]
     Dosage: UNK
     Dates: start: 20130514
  10. DEXAMETHASONE [Concomitant]
     Dosage: UNK
     Dates: start: 20130715, end: 20130717
  11. PEGFILGRASTIM [Concomitant]
     Dosage: UNK
     Dates: start: 20130515
  12. PARACETAMOL [Concomitant]
     Dosage: UNK
     Dates: start: 20130717

REACTIONS (5)
  - Neutropenia [Recovered/Resolved]
  - Leukopenia [Recovering/Resolving]
  - Vomiting [Recovered/Resolved]
  - Fatigue [Recovered/Resolved]
  - Influenza like illness [Unknown]
